FAERS Safety Report 15139542 (Version 1)
Quarter: 2018Q3

REPORT INFORMATION
  Report Type: Spontaneous
  Country: RU (occurrence: RU)
  Receive Date: 20180713
  Receipt Date: 20180713
  Transmission Date: 20181010
  Serious: Yes (Other)
  Sender: FDA-Public Use
  Company Number: RU-ASPEN-GLO2018RU006390

PATIENT
  Age: 1 Year
  Sex: Female

DRUGS (9)
  1. RITUXIMAB. [Suspect]
     Active Substance: RITUXIMAB
     Indication: IMMUNOSUPPRESSION
     Route: 065
  2. FLUDARABINE [Suspect]
     Active Substance: FLUDARABINE PHOSPHATE
     Dosage: 90 MG/M2
     Route: 065
  3. BORTEZOMIB. [Suspect]
     Active Substance: BORTEZOMIB
     Indication: IMMUNOSUPPRESSION
     Dosage: 1.3 MG/M2 DAYS ?5, ?2, +2, +5)
     Route: 065
  4. FLUDARABINE [Suspect]
     Active Substance: FLUDARABINE PHOSPHATE
     Indication: BONE MARROW CONDITIONING REGIMEN
     Dosage: 120 MG/M2, UNK
     Route: 065
  5. THIOTEPA COMP [Suspect]
     Active Substance: THIOTEPA
     Indication: BONE MARROW CONDITIONING REGIMEN
     Dosage: 10 MG/KG, UNK
     Route: 065
  6. BUSULFAN. [Suspect]
     Active Substance: BUSULFAN
     Indication: BONE MARROW CONDITIONING REGIMEN
     Dosage: 16 MG/KG, UNK
     Route: 065
  7. ALKERAN [Suspect]
     Active Substance: MELPHALAN
     Indication: BONE MARROW CONDITIONING REGIMEN
     Dosage: 140 MG/M2, UNK
     Route: 065
  8. CYCLOPHOSPHAMIDE. [Suspect]
     Active Substance: CYCLOPHOSPHAMIDE
     Indication: IMMUNOSUPPRESSION
     Dosage: 100 MG/KG KG ON D+3 AND D+4
     Route: 065
  9. ATGAM [Suspect]
     Active Substance: EQUINE THYMOCYTE IMMUNE GLOBULIN
     Indication: BONE MARROW CONDITIONING REGIMEN
     Dosage: 50 MG/KG, UNK
     Route: 065

REACTIONS (7)
  - Disease progression [None]
  - Transplant failure [Unknown]
  - Bone marrow transplant [None]
  - Aplasia pure red cell [Unknown]
  - Hyperkinesia [None]
  - Off label use [Unknown]
  - Cytomegalovirus viraemia [Unknown]
